FAERS Safety Report 10185675 (Version 2)
Quarter: 2014Q2

REPORT INFORMATION
  Report Type: Spontaneous
  Country: FR (occurrence: FR)
  Receive Date: 20140521
  Receipt Date: 20140605
  Transmission Date: 20141212
  Serious: Yes (Other)
  Sender: FDA-Public Use
  Company Number: FR-ROXANE LABORATORIES, INC.-2014-BI-22012GD

PATIENT
  Age: 55 Year
  Sex: Male

DRUGS (15)
  1. MORPHINE [Suspect]
     Indication: PRODUCT USED FOR UNKNOWN INDICATION
     Route: 065
  2. OMEPRAZOLE [Suspect]
     Indication: PRODUCT USED FOR UNKNOWN INDICATION
     Route: 065
  3. IMIPENEM [Suspect]
     Indication: PNEUMONIA
     Route: 065
  4. IMIPENEM [Suspect]
     Indication: ACUTE RESPIRATORY DISTRESS SYNDROME
  5. VANCOMYCIN [Suspect]
     Indication: PNEUMONIA
     Route: 065
  6. VANCOMYCIN [Suspect]
     Indication: ACUTE RESPIRATORY DISTRESS SYNDROME
  7. CIPROFLOXACIN [Suspect]
     Indication: PNEUMONIA
     Route: 065
  8. CIPROFLOXACIN [Suspect]
     Indication: ACUTE RESPIRATORY DISTRESS SYNDROME
  9. MYCOPHENOLATE MOFETIL [Suspect]
     Indication: PRODUCT USED FOR UNKNOWN INDICATION
     Route: 065
  10. TACROLIMUS [Suspect]
     Indication: PRODUCT USED FOR UNKNOWN INDICATION
     Route: 065
  11. SODIUM VALPROATE [Suspect]
     Indication: STATUS EPILEPTICUS
     Route: 042
  12. HALOPERIDOL [Suspect]
     Indication: CONFUSIONAL STATE
     Route: 065
  13. HALOPERIDOL [Suspect]
     Indication: AGITATION
  14. CORTICOSTEROIDS [Concomitant]
     Indication: PRODUCT USED FOR UNKNOWN INDICATION
     Route: 065
  15. ENOXAPARIN [Concomitant]
     Indication: PRODUCT USED FOR UNKNOWN INDICATION
     Route: 065

REACTIONS (1)
  - Toxic encephalopathy [Unknown]
